FAERS Safety Report 21637472 (Version 1)
Quarter: 2022Q4

REPORT INFORMATION
  Report Type: Spontaneous
  Country: US (occurrence: US)
  Receive Date: 20221124
  Receipt Date: 20221124
  Transmission Date: 20230113
  Serious: Yes (Other)
  Sender: FDA-Public Use
  Company Number: US-GLAXOSMITHKLINE-USCH2022043540

PATIENT
  Sex: Male

DRUGS (1)
  1. ROBITUSSIN NOS [Suspect]
     Active Substance: ACETAMINOPHEN\CHLORPHENIRAMINE HYDROCHLORIDE\DEXTROMETHORPHAN\GUAIFENESIN\PHENYLPROPANOLAMINE HYDROC
     Indication: Product used for unknown indication
     Dosage: UNK

REACTIONS (5)
  - Hallucination [Unknown]
  - Hallucination, auditory [Unknown]
  - Dependence [Unknown]
  - Vein disorder [Unknown]
  - Auditory disorder [Unknown]
